FAERS Safety Report 7784825-0 (Version None)
Quarter: 2011Q3

REPORT INFORMATION
  Report Type: 
  Country: None (occurrence: None)
  Receive Date: 20110928
  Receipt Date: 20110923
  Transmission Date: 20111222
  Serious: Yes (Other)
  Sender: FDA-Public Use
  Company Number: AT-ROCHE-803289

PATIENT
  Age: 48 Year
  Sex: Male
  Weight: 74.4 kg

DRUGS (1)
  1. VEMURAFENIB [Suspect]
     Indication: METASTATIC MALIGNANT MELANOMA
     Dosage: LAST DOSE PRIOR TO SAE: 8 SEPTEMBER 2011
     Route: 048
     Dates: start: 20110621

REACTIONS (1)
  - MALIGNANT MELANOMA [None]
